FAERS Safety Report 8206257 (Version 3)
Quarter: 2013Q2

REPORT INFORMATION
  Report Type: Spontaneous
  Country: US (occurrence: US)
  Receive Date: 20111028
  Receipt Date: 20130514
  Transmission Date: 20140414
  Serious: Yes (Death, Hospitalization)
  Sender: FDA-Public Use
  Company Number: US-GLAXOSMITHKLINE-A0885643A

PATIENT
  Age: 62 Year
  Sex: Male

DRUGS (17)
  1. ADVAIR [Suspect]
     Indication: CHRONIC OBSTRUCTIVE PULMONARY DISEASE
     Dosage: 1PUFF TWICE PER DAY
     Route: 055
     Dates: start: 2001, end: 201008
  2. SPIRIVA [Suspect]
     Indication: PRODUCT USED FOR UNKNOWN INDICATION
     Route: 065
  3. ADVAIR [Suspect]
     Indication: CHRONIC OBSTRUCTIVE PULMONARY DISEASE
     Dosage: 2PUFF TWICE PER DAY
     Route: 055
     Dates: start: 201010
  4. BLOOD PRESSURE MEDICATION [Concomitant]
  5. ZETIA [Concomitant]
  6. WELCHOL [Concomitant]
  7. CRESTOR [Concomitant]
  8. VICODIN [Concomitant]
  9. ALBUTEROL SOLUTION [Concomitant]
  10. ASPIRIN [Concomitant]
  11. CENTRUM [Concomitant]
  12. TIZANIDINE [Concomitant]
  13. CARVEDILOL [Concomitant]
  14. THEOPHYLLINE [Concomitant]
  15. TOPIRAMATE [Concomitant]
  16. PANTOPRAZOLE [Concomitant]
  17. PRIMATENE [Concomitant]

REACTIONS (11)
  - Death [Fatal]
  - Cardiac failure congestive [Recovering/Resolving]
  - Ischaemic hepatitis [Unknown]
  - Candida infection [Recovered/Resolved]
  - Chronic obstructive pulmonary disease [Recovering/Resolving]
  - Emphysema [Recovering/Resolving]
  - Neck pain [Recovering/Resolving]
  - Cardiac disorder [Unknown]
  - Lung disorder [Unknown]
  - Liver disorder [Unknown]
  - Ill-defined disorder [Unknown]
